FAERS Safety Report 26212880 (Version 1)
Quarter: 2025Q4

REPORT INFORMATION
  Report Type: Spontaneous
  Country: US (occurrence: US)
  Receive Date: 20251230
  Receipt Date: 20251230
  Transmission Date: 20260118
  Serious: No
  Sender: VERTEX
  Company Number: US-VERTEX PHARMACEUTICALS-2025-022172

PATIENT
  Sex: Female

DRUGS (6)
  1. JOURNAVX [Suspect]
     Active Substance: SUZETRIGINE
     Indication: Pain
     Dosage: 50 MG SUZETRIGINE
     Route: 061
     Dates: start: 20251211, end: 20251217
  2. CHLORHEXIDINE HCL [Concomitant]
     Dosage: UNK
  3. BETADINE [Concomitant]
     Active Substance: POVIDONE-IODINE
     Dosage: UNK
  4. ADVIL [Concomitant]
     Active Substance: IBUPROFEN
     Indication: Muscle spasms
     Dosage: UNK
  5. ADVIL [Concomitant]
     Active Substance: IBUPROFEN
     Indication: Pain
  6. ADVIL [Concomitant]
     Active Substance: IBUPROFEN
     Indication: Insomnia

REACTIONS (6)
  - Pruritus [Not Recovered/Not Resolved]
  - Rash erythematous [Unknown]
  - Pustule [Unknown]
  - Rash macular [Unknown]
  - Feeling hot [Unknown]
  - Erythema [Unknown]

NARRATIVE: CASE EVENT DATE: 20251211
